FAERS Safety Report 24422857 (Version 4)
Quarter: 2024Q4

REPORT INFORMATION
  Report Type: Spontaneous
  Country: US (occurrence: US)
  Receive Date: 20241010
  Receipt Date: 20241204
  Transmission Date: 20250115
  Serious: No
  Sender: PFIZER
  Company Number: US-PFIZER INC-202400270002

PATIENT
  Age: 3 Year
  Sex: Female

DRUGS (2)
  1. GENOTROPIN [Suspect]
     Active Substance: SOMATROPIN
     Dosage: 0.3 MG
  2. GENOTROPIN [Suspect]
     Active Substance: SOMATROPIN
     Dosage: 0.4 MG

REACTIONS (4)
  - Drug dose omission by device [Unknown]
  - Poor quality device used [Unknown]
  - Device use error [Unknown]
  - Device material issue [Unknown]

NARRATIVE: CASE EVENT DATE: 20240927
